FAERS Safety Report 6390598-9 (Version None)
Quarter: 2009Q4

REPORT INFORMATION
  Report Type: 
  Country: None (occurrence: None)
  Receive Date: 20091003
  Receipt Date: 20090731
  Transmission Date: 20100525
  Serious: Yes (Other)
  Sender: FDA-Public Use
  Company Number: 2009US001092

PATIENT
  Age: 28 Year
  Sex: Female

DRUGS (8)
  1. AMBISOME [Suspect]
     Indication: PNEUMONIA FUNGAL
     Dosage: 150 MG, UID/QD, IV DRIP; 90 MG, UID/QD, IV DRIP
     Route: 041
     Dates: start: 20090223, end: 20090223
  2. AMBISOME [Suspect]
     Indication: PNEUMONIA FUNGAL
     Dosage: 150 MG, UID/QD, IV DRIP; 90 MG, UID/QD, IV DRIP
     Route: 041
     Dates: start: 20090224, end: 20090224
  3. NEORAL [Suspect]
     Indication: APLASTIC ANAEMIA
     Dosage: 200 MG, UID/QD, ORAL
     Route: 048
     Dates: end: 20090224
  4. TAMIFLU [Concomitant]
  5. ROCEPHIN [Concomitant]
  6. LEVOFLOXACIN [Concomitant]
  7. RED BLOOD CELLS [Concomitant]
  8. VFEND [Concomitant]

REACTIONS (18)
  - ABNORMAL BEHAVIOUR [None]
  - AMNESIA [None]
  - ANXIETY [None]
  - BONE MARROW TRANSPLANT [None]
  - COUGH [None]
  - CRYING [None]
  - DELIRIUM [None]
  - DISSOCIATIVE DISORDER [None]
  - DYSPNOEA [None]
  - ENCEPHALITIS HERPES [None]
  - FEELING ABNORMAL [None]
  - INCOHERENT [None]
  - INFUSION RELATED REACTION [None]
  - INSOMNIA [None]
  - RENAL DISORDER [None]
  - STRESS [None]
  - TOXIC ENCEPHALOPATHY [None]
  - TREMOR [None]
